FAERS Safety Report 7560487-2 (Version None)
Quarter: 2011Q2

REPORT INFORMATION
  Report Type: 
  Country: None (occurrence: None)
  Receive Date: 20110621
  Receipt Date: 20110613
  Transmission Date: 20111010
  Serious: Yes (Hospitalization)
  Sender: FDA-Public Use
  Company Number: MX-BRISTOL-MYERS SQUIBB COMPANY-14920755

PATIENT
  Age: 61 Year
  Sex: Male

DRUGS (6)
  1. AMIODARONA [Concomitant]
     Dates: start: 20090901
  2. CIMEHEXAL [Concomitant]
     Dates: start: 19990101
  3. WARFARIN SODIUM [Suspect]
     Indication: THROMBOSIS PROPHYLAXIS
     Dosage: INTERRUPTED-10DEC09;NO.OF.COURSES:1
     Route: 048
     Dates: start: 20090810
  4. PLACEBO [Suspect]
     Indication: THROMBOSIS PROPHYLAXIS
     Dosage: INTERRUPTED-10DEC09;
     Route: 048
     Dates: start: 20090810
  5. CAPTOPRIL [Concomitant]
     Dates: start: 19990101
  6. TELMISARTAN [Concomitant]
     Dates: start: 19990101

REACTIONS (1)
  - SHOCK [None]
